FAERS Safety Report 14667240 (Version 2)
Quarter: 2020Q1

REPORT INFORMATION
  Report Type: Spontaneous
  Country: US (occurrence: US)
  Receive Date: 20180322
  Receipt Date: 20200307
  Transmission Date: 20200409
  Serious: Yes (Hospitalization, Other)
  Sender: FDA-Public Use
  Company Number: US-ZYDUS-019314

PATIENT
  Age: 30 Year
  Sex: Male

DRUGS (3)
  1. CETIRIZINE [Concomitant]
     Active Substance: CETIRIZINE HYDROCHLORIDE
     Indication: PRODUCT USED FOR UNKNOWN INDICATION
     Route: 065
  2. TELMISARTAN. [Concomitant]
     Active Substance: TELMISARTAN
     Indication: PRODUCT USED FOR UNKNOWN INDICATION
     Route: 065
  3. CARVEDILOL/CARVEDILOL HYDROCHLODRIDE [Suspect]
     Active Substance: CARVEDILOL HYDROCHLORIDE
     Indication: PRODUCT USED FOR UNKNOWN INDICATION
     Route: 065

REACTIONS (9)
  - Nausea [Recovering/Resolving]
  - Jaundice [Recovering/Resolving]
  - Hepatomegaly [Recovering/Resolving]
  - Vomiting [Recovering/Resolving]
  - Chromaturia [Recovering/Resolving]
  - Hepatic steatosis [Recovering/Resolving]
  - Faeces pale [Recovering/Resolving]
  - Drug-induced liver injury [Recovering/Resolving]
  - Hypotension [Recovering/Resolving]
